FAERS Safety Report 9382851 (Version 2)
Quarter: 2013Q3

REPORT INFORMATION
  Report Type: Spontaneous
  Country: JP (occurrence: JP)
  Receive Date: 20130703
  Receipt Date: 20130712
  Transmission Date: 20140515
  Serious: Yes (Hospitalization)
  Sender: FDA-Public Use
  Company Number: JP-B.I. PHARMACEUTICALS,INC./RIDGEFIELD-2013-BI-18548NB

PATIENT
  Age: 89 Year
  Sex: Female

DRUGS (7)
  1. PRAZAXA [Suspect]
     Indication: ATRIAL FIBRILLATION
     Dosage: 220 MG
     Route: 048
  2. AMOBAN [Suspect]
     Dosage: 7.5 MG
     Route: 048
  3. SEROQUEL [Suspect]
     Dosage: 25 MG
     Route: 048
  4. ARTIST [Suspect]
     Dosage: 1.25 MG
     Route: 048
  5. LANIRAPID [Suspect]
     Dosage: 0.05 MG
     Route: 048
  6. LASIX [Suspect]
     Dosage: 20 MG
     Route: 048
  7. EBRANTIL [Suspect]
     Dosage: 15 MG
     Route: 048

REACTIONS (2)
  - Fracture [Unknown]
  - Platelet count decreased [Unknown]
